FAERS Safety Report 4886462-4 (Version None)
Quarter: 2006Q1

REPORT INFORMATION
  Report Type: 
  Country: None (occurrence: None)
  Receive Date: 20060120
  Receipt Date: 20060109
  Transmission Date: 20060701
  Serious: Yes (Hospitalization)
  Sender: FDA-Public Use
  Company Number: US-MERCK-0601USA01270

PATIENT
  Age: 55 Year
  Sex: Female
  Weight: 67 kg

DRUGS (34)
  1. VIOXX [Suspect]
     Indication: ARTHRALGIA
     Route: 048
     Dates: start: 20010101, end: 20030601
  2. ALBUTEROL [Concomitant]
     Route: 055
  3. AMBIEN [Concomitant]
     Route: 065
  4. AMOXICILLIN [Concomitant]
     Route: 065
  5. TYLENOL W/ CODEINE [Concomitant]
     Route: 065
  6. ARAVA [Concomitant]
     Route: 065
  7. ASPIRIN [Concomitant]
     Route: 065
  8. ATENOLOL [Concomitant]
     Route: 065
  9. AUGMENTIN '125' [Concomitant]
     Route: 065
  10. AZMACORT [Concomitant]
     Route: 065
  11. CALCIUM CARBONATE [Concomitant]
     Route: 065
  12. CARISOPRODOL [Concomitant]
     Route: 065
  13. CEFACLOR [Concomitant]
     Route: 065
  14. ENBREL [Concomitant]
     Route: 065
  15. ENDOCET [Concomitant]
     Route: 065
  16. ESTROGENS (UNSPECIFIED) [Concomitant]
     Route: 065
  17. FOLIC ACID [Concomitant]
     Route: 065
  18. FOSAMAX [Concomitant]
     Route: 048
  19. ACETAMINOPHEN AND HYDROCODONE BITARTRATE [Concomitant]
     Route: 065
  20. HYDROXYZINE HYDROCHLORIDE [Concomitant]
     Route: 065
  21. IBUPROFEN [Concomitant]
     Route: 065
  22. IPRATROPIUM BROMIDE [Concomitant]
     Route: 055
  23. LEUCOVORIN CALCIUM [Concomitant]
     Route: 065
  24. METFORMIN [Concomitant]
     Route: 065
  25. METHOTREXATE [Concomitant]
     Route: 065
  26. NECON [Concomitant]
     Route: 065
  27. ORTHO NOVUM 2/50 21 TAB [Concomitant]
     Route: 065
  28. NEURONTIN [Concomitant]
     Route: 065
  29. PREDNISONE [Concomitant]
     Route: 065
  30. PREMPRO [Concomitant]
     Route: 065
  31. PRILOSEC [Concomitant]
     Route: 065
  32. PROMETHAZINE [Concomitant]
     Route: 065
  33. THEOPHYLLINE [Concomitant]
     Route: 065
  34. VEETIDS [Concomitant]
     Route: 065

REACTIONS (2)
  - ANGINA UNSTABLE [None]
  - MYOCARDIAL INFARCTION [None]
